FAERS Safety Report 9745674 (Version 1)
Quarter: 2013Q4

REPORT INFORMATION
  Report Type: Spontaneous
  Country: TR (occurrence: TR)
  Receive Date: 20131211
  Receipt Date: 20131211
  Transmission Date: 20140711
  Serious: Yes (Hospitalization, Other)
  Sender: FDA-Public Use
  Company Number: TR-VERTEX PHARMACEUTICALS INC-2013-011681

PATIENT
  Age: 52 Year
  Sex: Male

DRUGS (3)
  1. INCIVO [Suspect]
     Indication: HEPATITIS C
     Route: 065
     Dates: start: 201302
  2. RIBAVIRIN [Suspect]
     Indication: HEPATITIS C
     Dosage: DOSAGE FORM: UNSPECIFIED, 1ST MONTH: 1X1 3RD MONTH: 1X1 6TH MONTH: 1X1
     Route: 065
     Dates: start: 201302
  3. PEGYLATED INTERFERON [Suspect]
     Indication: HEPATITIS C
     Dosage: DOSAGE FORM: UNSPECIFIED
     Route: 065
     Dates: start: 201302

REACTIONS (8)
  - Pancytopenia [Unknown]
  - Upper respiratory tract infection [Unknown]
  - Dizziness [Recovered/Resolved]
  - Alopecia [Recovered/Resolved]
  - Off label use [Unknown]
  - Nausea [Recovered/Resolved]
  - Vomiting [Recovered/Resolved]
  - Anal pruritus [Unknown]
